FAERS Safety Report 6079589-5 (Version None)
Quarter: 2009Q1

REPORT INFORMATION
  Report Type: 
  Country: None (occurrence: None)
  Receive Date: 20090217
  Receipt Date: 20090211
  Transmission Date: 20090719
  Serious: No
  Sender: FDA-Public Use
  Company Number: US-JNJFOC-20090203474

PATIENT
  Sex: Female
  Weight: 50.8 kg

DRUGS (2)
  1. DURAGESIC-100 [Suspect]
     Indication: FIBROMYALGIA
     Route: 062
  2. XANAX [Concomitant]
     Indication: ANXIETY
     Dosage: AS NEEDED
     Route: 048

REACTIONS (3)
  - APPLICATION SITE PRURITUS [None]
  - APPLICATION SITE SWELLING [None]
  - INAPPROPRIATE SCHEDULE OF DRUG ADMINISTRATION [None]
